FAERS Safety Report 8462492-0 (Version None)
Quarter: 2012Q2

REPORT INFORMATION
  Report Type: 
  Country: None (occurrence: None)
  Receive Date: 20120625
  Receipt Date: 20120614
  Transmission Date: 20120825
  Serious: Yes (Hospitalization)
  Sender: FDA-Public Use
  Company Number: US-ASTRAZENECA-2012SE40492

PATIENT
  Age: 77 Year
  Sex: Male

DRUGS (1)
  1. SYMBICORT [Suspect]
     Route: 055

REACTIONS (7)
  - BALANCE DISORDER [None]
  - FALL [None]
  - ASBESTOSIS [None]
  - RENAL DISORDER [None]
  - BLOOD POTASSIUM DECREASED [None]
  - ASTHMA [None]
  - BLOOD MAGNESIUM DECREASED [None]
